FAERS Safety Report 11257875 (Version 2)
Quarter: 2015Q3

REPORT INFORMATION
  Report Type: Spontaneous
  Country: JP (occurrence: JP)
  Receive Date: 20150710
  Receipt Date: 20150729
  Transmission Date: 20151125
  Serious: Yes (Other)
  Sender: FDA-Public Use
  Company Number: JP-009507513-1507JPN004417

PATIENT
  Sex: Male

DRUGS (2)
  1. NU-LOTAN [Suspect]
     Active Substance: LOSARTAN POTASSIUM
     Dosage: DAILY DOSE UNKNOWN
     Route: 048
  2. NU-LOTAN [Suspect]
     Active Substance: LOSARTAN POTASSIUM
     Dosage: DAILY DOSE UNKNOWN
     Route: 048

REACTIONS (2)
  - Hypoacusis [Unknown]
  - Hypoglycaemia [Unknown]
